FAERS Safety Report 25218476 (Version 6)
Quarter: 2025Q3

REPORT INFORMATION
  Report Type: Report from Study
  Country: CA (occurrence: CA)
  Receive Date: 20250421
  Receipt Date: 20250825
  Transmission Date: 20251020
  Serious: Yes (Hospitalization, Other)
  Sender: ROCHE
  Company Number: CA-002147023-NVSC2025CA058287

PATIENT
  Age: 78 Year
  Sex: Female

DRUGS (3)
  1. XOLAIR [Suspect]
     Active Substance: OMALIZUMAB
     Indication: Chronic spontaneous urticaria
     Dosage: 300 MG, EVERY 4 WEEKS
     Route: 058
     Dates: start: 20250326
  2. XOLAIR [Suspect]
     Active Substance: OMALIZUMAB
     Route: 058
     Dates: start: 20250617
  3. XOLAIR [Suspect]
     Active Substance: OMALIZUMAB
     Route: 058
     Dates: start: 20250621

REACTIONS (20)
  - Papule [Recovering/Resolving]
  - Skin plaque [Unknown]
  - Headache [Unknown]
  - Pruritus [Recovered/Resolved]
  - Lip swelling [Recovered/Resolved]
  - Abdominal pain [Unknown]
  - Pain of skin [Unknown]
  - Skin discomfort [Unknown]
  - Skin discolouration [Unknown]
  - Erythema [Recovered/Resolved]
  - Rash [Unknown]
  - Cheilitis [Unknown]
  - Urticaria [Unknown]
  - Angioedema [Recovered/Resolved]
  - Swelling face [Recovered/Resolved]
  - Drug ineffective [Unknown]
  - Throat irritation [Recovered/Resolved]
  - Sneezing [Recovered/Resolved]
  - Cough [Recovered/Resolved]
  - Type I hypersensitivity [Recovered/Resolved]

NARRATIVE: CASE EVENT DATE: 20250326
